FAERS Safety Report 9377565 (Version 2)
Quarter: 2013Q3

REPORT INFORMATION
  Report Type: Spontaneous
  Country: US (occurrence: US)
  Receive Date: 20130701
  Receipt Date: 20130725
  Transmission Date: 20140515
  Serious: No
  Sender: FDA-Public Use
  Company Number: US-PFIZER INC-2013191391

PATIENT
  Sex: Female

DRUGS (3)
  1. DIFLUCAN [Suspect]
     Indication: VULVOVAGINAL MYCOTIC INFECTION
     Dosage: UNK
     Dates: start: 201306
  2. NEXIUM [Concomitant]
     Indication: IMPAIRED GASTRIC EMPTYING
     Dosage: UNK
  3. NEXIUM [Concomitant]
     Indication: IMPAIRED GASTRIC EMPTYING

REACTIONS (1)
  - Drug ineffective [Unknown]
